FAERS Safety Report 14775671 (Version 1)
Quarter: 2018Q2

REPORT INFORMATION
  Report Type: Spontaneous
  Country: CZ (occurrence: CZ)
  Receive Date: 20180418
  Receipt Date: 20180418
  Transmission Date: 20180711
  Serious: Yes (Other)
  Sender: FDA-Public Use
  Company Number: CZ-B.I. PHARMACEUTICALS,INC./RIDGEFIELD-2018-BI-021156

PATIENT
  Age: 79 Year
  Sex: Male

DRUGS (2)
  1. OMNI TOCAS [Suspect]
     Active Substance: TAMSULOSIN
     Indication: BENIGN PROSTATIC HYPERPLASIA
     Dosage: 0.4 UNIT PER DOSAGE FORM
     Route: 065
  2. FINPROS [Concomitant]
     Indication: PRODUCT USED FOR UNKNOWN INDICATION
     Route: 065

REACTIONS (3)
  - Arrhythmia [Unknown]
  - Cardiac arrest [Unknown]
  - Atrioventricular block [Unknown]
